FAERS Safety Report 7945659-7 (Version None)
Quarter: 2011Q4

REPORT INFORMATION
  Report Type: 
  Country: None (occurrence: None)
  Receive Date: 20111129
  Receipt Date: 20111122
  Transmission Date: 20120403
  Serious: Yes (Hospitalization)
  Sender: FDA-Public Use
  Company Number: US-UCBSA-043778

PATIENT
  Age: 67 Year
  Sex: Female
  Weight: 59.1 kg

DRUGS (12)
  1. LIPITOR [Concomitant]
     Indication: BLOOD CHOLESTEROL INCREASED
     Route: 048
     Dates: start: 20060101
  2. CERTOLIZUMAB PEGOL [Suspect]
     Indication: RHEUMATOID ARTHRITIS
     Route: 058
     Dates: start: 20110824, end: 20111005
  3. ASCORBIC ACID [Concomitant]
     Indication: VITAMIN SUPPLEMENTATION
     Route: 048
     Dates: start: 20080101
  4. FUROSEMIDE [Concomitant]
     Indication: HYPERTENSION
     Route: 048
     Dates: start: 20090101
  5. EXFORGE [Concomitant]
     Indication: HYPERTENSION
     Dosage: 10/320 MG, QD
     Route: 048
     Dates: start: 20110501
  6. CERTOLIZUMAB PEGOL [Suspect]
     Route: 058
     Dates: start: 20110713, end: 20110810
  7. CLONIDINE [Concomitant]
     Indication: HYPERTENSION
     Route: 048
     Dates: start: 20050101
  8. PLAVIX [Concomitant]
     Indication: CORONARY ARTERY DISEASE
     Route: 048
     Dates: start: 20040101
  9. FUROSEMIDE [Concomitant]
     Indication: CORONARY ARTERY DISEASE
     Route: 048
     Dates: start: 20090101
  10. METOPROLOL TARTRATE [Concomitant]
     Indication: HYPERTENSION
     Route: 048
     Dates: start: 20040101
  11. ALBUTEROL [Concomitant]
     Indication: EMPHYSEMA
     Dosage: 1 PUFF PRN
     Route: 055
     Dates: start: 20101001
  12. ALLOPURINOL [Concomitant]
     Indication: GOUT
     Route: 048
     Dates: start: 20101001

REACTIONS (1)
  - CELLULITIS [None]
